FAERS Safety Report 7961261-5 (Version None)
Quarter: 2011Q4

REPORT INFORMATION
  Report Type: 
  Country: None (occurrence: None)
  Receive Date: 20111201
  Receipt Date: 20111201
  Transmission Date: 20120403
  Serious: Yes (Hospitalization)
  Sender: FDA-Public Use
  Company Number: None

PATIENT
  Age: 65 Year
  Sex: Male

DRUGS (9)
  1. CARFILZOMIB [Suspect]
     Indication: WALDENSTROM'S MACROGLOBULINAEMIA
     Dosage: 36 MG IV
     Route: 042
     Dates: start: 20111107
  2. ADVAIR DISKUS 100/50 [Concomitant]
  3. METOPROLOL TARTRATE [Concomitant]
  4. SPIRIVA [Concomitant]
  5. ALBUTEROL [Concomitant]
  6. FOSAMAX [Concomitant]
  7. ASPIRIN [Concomitant]
  8. DEXAMETHASONE/RITUXIMAB [Suspect]
     Indication: WALDENSTROM'S MACROGLOBULINAEMIA
     Dosage: 20MGIV DEX 375MG/M2IV RI
     Route: 042
     Dates: start: 20111107
  9. LASIX [Concomitant]

REACTIONS (5)
  - EPIGASTRIC DISCOMFORT [None]
  - GALLBLADDER POLYP [None]
  - NEPHROLITHIASIS [None]
  - CHEST PAIN [None]
  - CHOLELITHIASIS [None]
